FAERS Safety Report 24988820 (Version 1)
Quarter: 2025Q1

REPORT INFORMATION
  Report Type: Spontaneous
  Country: US (occurrence: None)
  Receive Date: 20250220
  Receipt Date: 20250220
  Transmission Date: 20250408
  Serious: No
  Sender: ALEXION PHARMACEUTICALS
  Company Number: US-AstraZeneca-2007UW27329

PATIENT
  Age: 68 Year

DRUGS (5)
  1. NEXIUM [Suspect]
     Active Substance: ESOMEPRAZOLE MAGNESIUM
     Dosage: 40 MILLIGRAM, QD
  2. FOSAMAX [Concomitant]
     Active Substance: ALENDRONATE SODIUM
  3. ESTROGENS [Concomitant]
     Active Substance: ESTROGENS
  4. IBUPROFEN [Concomitant]
     Active Substance: IBUPROFEN
  5. CEPHALEXIN [Concomitant]
     Active Substance: CEPHALEXIN

REACTIONS (1)
  - Tinnitus [Unknown]
